FAERS Safety Report 6149452-X (Version None)
Quarter: 2009Q2

REPORT INFORMATION
  Report Type: 
  Country: None (occurrence: None)
  Receive Date: 20090409
  Receipt Date: 20090401
  Transmission Date: 20091009
  Serious: Yes (Hospitalization, Other)
  Sender: FDA-Public Use
  Company Number: US-BAYER-200711729BCC

PATIENT
  Age: 59 Year
  Sex: Female
  Weight: 118 kg

DRUGS (1)
  1. ALEVE [Suspect]
     Indication: PAIN IN EXTREMITY
     Route: 048

REACTIONS (8)
  - ABDOMINAL PAIN [None]
  - DECREASED APPETITE [None]
  - GASTRIC ULCER PERFORATION [None]
  - INTESTINAL PERFORATION [None]
  - NAUSEA [None]
  - PNEUMONIA [None]
  - VOMITING [None]
  - WHITE BLOOD CELL COUNT INCREASED [None]
